APPROVED DRUG PRODUCT: INDOMETHACIN
Active Ingredient: INDOMETHACIN
Strength: 50MG
Dosage Form/Route: SUPPOSITORY;RECTAL
Application: A215899 | Product #001 | TE Code: AB
Applicant: HIKMA PHARMACEUTICALS USA INC
Approved: Nov 19, 2024 | RLD: No | RS: No | Type: RX